FAERS Safety Report 5265938-4 (Version None)
Quarter: 2007Q1

REPORT INFORMATION
  Report Type: 
  Country: None (occurrence: None)
  Receive Date: 20070312
  Receipt Date: 20070312
  Transmission Date: 20070707
  Serious: Yes (Other)
  Sender: FDA-Public Use
  Company Number: None

PATIENT
  Sex: Female
  Weight: 58.9676 kg

DRUGS (1)
  1. PROCRIT [Suspect]
     Indication: ANAEMIA
     Dosage: 40.000 UNITS ONCE A MONTH IV
     Route: 042
     Dates: start: 20020101, end: 20070215

REACTIONS (1)
  - CARDIOMYOPATHY [None]
